FAERS Safety Report 11721277 (Version 1)
Quarter: 2015Q4

REPORT INFORMATION
  Report Type: Spontaneous
  Country: FR (occurrence: FR)
  Receive Date: 20151111
  Receipt Date: 20151111
  Transmission Date: 20160304
  Serious: Yes (Life-Threatening, Hospitalization)
  Sender: FDA-Public Use
  Company Number: FR-ROCHE-1658526

PATIENT
  Age: 39 Year
  Sex: Male

DRUGS (2)
  1. THERALENE (FRANCE) [Suspect]
     Active Substance: TRIMEPRAZINE
     Indication: PRODUCT USED FOR UNKNOWN INDICATION
     Route: 048
     Dates: start: 20150912
  2. VALIUM [Suspect]
     Active Substance: DIAZEPAM
     Indication: PRODUCT USED FOR UNKNOWN INDICATION
     Route: 048

REACTIONS (5)
  - Pulmonary embolism [Unknown]
  - Coma [Recovered/Resolved]
  - Pneumonia aspiration [Unknown]
  - Dysphagia [Unknown]
  - Ventricular dysfunction [Unknown]

NARRATIVE: CASE EVENT DATE: 20150912
